FAERS Safety Report 17103848 (Version 4)
Quarter: 2020Q1

REPORT INFORMATION
  Report Type: Report from Study
  Country: None (occurrence: LU)
  Receive Date: 20191203
  Receipt Date: 20200108
  Transmission Date: 20200409
  Serious: Yes (Death, Hospitalization)
  Sender: FDA-Public Use
  Company Number: LU-ABBVIE-19K-098-3174133-00

PATIENT
  Sex: Male

DRUGS (6)
  1. DUODOPA [Suspect]
     Active Substance: CARBIDOPA\LEVODOPA
     Dosage: DOSES CONTINUOUSLY MONITORED AND ADAPTED
     Route: 050
     Dates: start: 20180215, end: 20190425
  2. DUODOPA [Suspect]
     Active Substance: CARBIDOPA\LEVODOPA
     Dosage: MD=11ML, CD=3.8ML/HR DURING 16HRS, ED=2.5ML
     Route: 050
     Dates: start: 20190425, end: 20191209
  3. DUODOPA [Suspect]
     Active Substance: CARBIDOPA\LEVODOPA
     Dosage: MD=11ML, CD=3.8ML/HR DURING 16HRS, ED=2.5ML
     Route: 050
     Dates: start: 20191209
  4. DUODOPA [Suspect]
     Active Substance: CARBIDOPA\LEVODOPA
     Indication: PARKINSON^S DISEASE
     Dosage: MD=12ML, CD IS BETWEEN 3.4ML/HR AND 7ML/HR  DURING 16HRS, ED IS BETWEEN 1.5ML AND 4ML
     Route: 050
     Dates: start: 20171217, end: 20180215
  5. MIRAPEXIN [Concomitant]
     Active Substance: PRAMIPEXOLE
     Indication: PARKINSON^S DISEASE
     Route: 048
     Dates: end: 2017
  6. MIRAPEXIN [Concomitant]
     Active Substance: PRAMIPEXOLE
     Dates: start: 2017

REACTIONS (8)
  - Device occlusion [Unknown]
  - Femoral neck fracture [Unknown]
  - Fall [Recovered/Resolved]
  - Death [Fatal]
  - Pneumonia aspiration [Recovering/Resolving]
  - Mobility decreased [Unknown]
  - Renal disorder [Unknown]
  - Accident [Unknown]

NARRATIVE: CASE EVENT DATE: 20191230
